FAERS Safety Report 24828380 (Version 1)
Quarter: 2025Q1

REPORT INFORMATION
  Report Type: Spontaneous
  Country: CN (occurrence: CN)
  Receive Date: 20250109
  Receipt Date: 20250109
  Transmission Date: 20250409
  Serious: Yes (Other)
  Sender: TAKEDA
  Company Number: CN-JNJFOC-20241272781

PATIENT
  Age: 58 Year
  Sex: Female

DRUGS (4)
  1. VELCADE [Suspect]
     Active Substance: BORTEZOMIB
     Indication: Plasma cell myeloma
     Dosage: 2.3 MILLIGRAM, QD
     Dates: start: 20241024, end: 20241024
  2. VELCADE [Suspect]
     Active Substance: BORTEZOMIB
     Dosage: 2.3 MILLIGRAM, QD
     Dates: start: 20241031, end: 20241031
  3. DARZALEX [Suspect]
     Active Substance: DARATUMUMAB
     Indication: Plasma cell myeloma
     Dosage: 1000 MILLIGRAM, QD
     Dates: start: 20241024, end: 20241024
  4. DARZALEX [Suspect]
     Active Substance: DARATUMUMAB
     Dosage: 1000 MILLIGRAM, QD
     Dates: start: 20241031, end: 20241031

REACTIONS (1)
  - Myelosuppression [Recovering/Resolving]

NARRATIVE: CASE EVENT DATE: 20241102
